FAERS Safety Report 13296411 (Version 1)
Quarter: 2017Q1

REPORT INFORMATION
  Report Type: Spontaneous
  Country: US (occurrence: US)
  Receive Date: 20170305
  Receipt Date: 20170305
  Transmission Date: 20170428
  Serious: No
  Sender: FDA-Public Use
  Company Number: US-SHIRE-US201702928

PATIENT
  Sex: Male

DRUGS (1)
  1. FOSRENOL [Suspect]
     Active Substance: LANTHANUM CARBONATE
     Indication: BLOOD PHOSPHORUS
     Dosage: 1000 MG (4 TABLETS 1 AT BREAKFAST, 1 AT LUNH, 2 AT DINNER), OTHER (TID)
     Route: 048

REACTIONS (2)
  - Asthenia [Not Recovered/Not Resolved]
  - Drug dose omission [Unknown]
